FAERS Safety Report 8247380 (Version 3)
Quarter: 2018Q3

REPORT INFORMATION
  Report Type: Report from Study
  Country: US (occurrence: US)
  Receive Date: 20111116
  Receipt Date: 20180906
  Transmission Date: 20181010
  Serious: Yes (Death, Hospitalization, Other)
  Sender: FDA-Public Use
  Company Number: US-ACTELION-A-NJ2009-24686

PATIENT
  Age: 74 Year
  Sex: Female

DRUGS (3)
  1. TRACLEER [Suspect]
     Active Substance: BOSENTAN
     Indication: PULMONARY ARTERIAL HYPERTENSION
     Dosage: 125 MG, BID
     Route: 048
     Dates: start: 20080807, end: 20180825
  2. FERON [Concomitant]
     Active Substance: INTERFERON BETA
  3. SILDENAFIL. [Concomitant]
     Active Substance: SILDENAFIL
     Dosage: 40 MG, TID
     Dates: start: 20180415

REACTIONS (8)
  - Back pain [Recovered/Resolved]
  - Spinal laminectomy [Recovered/Resolved]
  - Facetectomy [Recovered/Resolved]
  - Post procedural complication [Recovered/Resolved]
  - Death [Fatal]
  - Fatigue [Unknown]
  - Blood iron decreased [Recovered/Resolved]
  - Foraminotomy [Recovered/Resolved]

NARRATIVE: CASE EVENT DATE: 200903
